FAERS Safety Report 15722338 (Version 2)
Quarter: 2018Q4

REPORT INFORMATION
  Report Type: Report from Study
  Country: DE (occurrence: DE)
  Receive Date: 20181214
  Receipt Date: 20181226
  Transmission Date: 20190205
  Serious: Yes (Hospitalization, Other)
  Sender: FDA-Public Use
  Company Number: DE-AMGEN-DEUSL2018178289

PATIENT
  Age: 78 Year
  Sex: Male
  Weight: 65 kg

DRUGS (5)
  1. CLEXANE [Concomitant]
     Active Substance: ENOXAPARIN SODIUM
     Indication: THROMBOSIS PROPHYLAXIS
     Dosage: UNK, QD (60)
     Route: 058
     Dates: start: 2018
  2. FLUOROURACIL. [Suspect]
     Active Substance: FLUOROURACIL
     Indication: COLON CANCER
     Dosage: 4173 MG, Q2WK (6 MG/M2, 1 D CYCLE: 14 D)
     Route: 041
     Dates: start: 20180529
  3. FLUOROURACIL. [Suspect]
     Active Substance: FLUOROURACIL
     Dosage: 695 MG, Q2WK
     Route: 040
  4. PANITUMUMAB [Suspect]
     Active Substance: PANITUMUMAB
     Indication: COLON CANCER
     Dosage: 390 MG, Q2WK (6 MG/M2, 1 D CYCLE: 14 D)
     Route: 042
     Dates: start: 20180529
  5. IRINOTECAN [Suspect]
     Active Substance: IRINOTECAN
     Indication: COLON CANCER
     Dosage: 313 MG, Q2WK (6 MG/M2, 1 D CYCLE: 14 D)
     Route: 065
     Dates: start: 20180529

REACTIONS (7)
  - Alopecia [Unknown]
  - Fibrin D dimer increased [Recovered/Resolved]
  - Skin toxicity [Not Recovered/Not Resolved]
  - Fatigue [Not Recovered/Not Resolved]
  - Dyspnoea [Recovered/Resolved]
  - Syncope [Recovered/Resolved]
  - Diarrhoea [Recovered/Resolved]

NARRATIVE: CASE EVENT DATE: 20180625
